FAERS Safety Report 9966514 (Version 2)
Quarter: 2014Q1

REPORT INFORMATION
  Report Type: Report from Study
  Country: US (occurrence: US)
  Receive Date: 20140305
  Receipt Date: 20140305
  Transmission Date: 20141002
  Serious: No
  Sender: FDA-Public Use
  Company Number: US-ABBVIE-12P-163-0961275-00

PATIENT
  Sex: Male

DRUGS (15)
  1. HUMIRA 40 MG/0.8 ML PEN [Suspect]
     Indication: RHEUMATOID ARTHRITIS
     Route: 058
     Dates: end: 201104
  2. HUMIRA 40 MG/0.8 ML PEN [Suspect]
     Dates: start: 20130410
  3. ENBREL [Suspect]
     Indication: RHEUMATOID ARTHRITIS
     Dates: start: 201207
  4. ALLOPURINOL [Concomitant]
     Indication: GOUT
  5. MELOXICAM [Concomitant]
     Indication: RHEUMATOID ARTHRITIS
  6. NEXIUM [Concomitant]
     Indication: PROPHYLAXIS AGAINST GASTROINTESTINAL ULCER
  7. IMURAN [Concomitant]
     Indication: RHEUMATOID ARTHRITIS
  8. METOPROLOL [Concomitant]
     Indication: HYPERTENSION
  9. ZOLOFT [Concomitant]
     Indication: DEPRESSION
  10. CLONAZAPAM [Concomitant]
     Indication: RESTLESS LEGS SYNDROME
  11. PREDNISONE [Concomitant]
     Indication: RHEUMATOID ARTHRITIS
  12. FABBTABS [Concomitant]
     Indication: VITAMIN SUPPLEMENTATION
  13. ASPIRIN [Concomitant]
     Indication: CORONARY ARTERY DISEASE
  14. COLCRYS [Concomitant]
     Indication: GOUT
  15. VITAMIN B [Concomitant]

REACTIONS (7)
  - Joint swelling [Not Recovered/Not Resolved]
  - Local swelling [Not Recovered/Not Resolved]
  - Local swelling [Not Recovered/Not Resolved]
  - Joint lock [Not Recovered/Not Resolved]
  - Joint lock [Not Recovered/Not Resolved]
  - Arthralgia [Not Recovered/Not Resolved]
  - Diarrhoea [Recovered/Resolved]
